FAERS Safety Report 10078481 (Version 1)
Quarter: 2014Q2

REPORT INFORMATION
  Report Type: Spontaneous
  Country: US (occurrence: US)
  Receive Date: 20140415
  Receipt Date: 20140415
  Transmission Date: 20141212
  Serious: Yes (Hospitalization, Other)
  Sender: FDA-Public Use
  Company Number: US-DRREDDYS-USA/USA/14/0039608

PATIENT
  Age: 78 Year
  Sex: Male

DRUGS (6)
  1. AMLODIPINE BESYLATE W/BENAZEPRIL HYDROCHLORIDE [Suspect]
     Indication: BLOOD PRESSURE
     Route: 065
  2. SPIRONOLACTONE [Suspect]
     Indication: BLOOD PRESSURE
     Route: 065
  3. HYDROCHLOROTHIAZIDE [Suspect]
     Indication: BLOOD PRESSURE
     Route: 065
  4. ALISKIREN [Suspect]
     Indication: BLOOD PRESSURE
     Route: 065
  5. CARVEDILOL [Concomitant]
     Indication: BLOOD PRESSURE
     Route: 065
  6. ROSUVASTATIN [Concomitant]
     Indication: PRODUCT USED FOR UNKNOWN INDICATION
     Route: 065

REACTIONS (1)
  - Renal failure acute [Recovering/Resolving]
